FAERS Safety Report 6922414-8 (Version None)
Quarter: 2010Q3

REPORT INFORMATION
  Report Type: 
  Country: None (occurrence: None)
  Receive Date: 20100813
  Receipt Date: 20100810
  Transmission Date: 20110219
  Serious: Yes (Death, Hospitalization)
  Sender: FDA-Public Use
  Company Number: FR-WYE-G06526610

PATIENT
  Age: 76 Year
  Sex: Female

DRUGS (3)
  1. PIPERACILLIN AND TAZOBACTAM [Suspect]
     Route: 042
     Dates: start: 20100401
  2. CIFLOX [Suspect]
     Dates: start: 20100401
  3. AUGMENTIN '125' [Suspect]
     Dates: start: 20100401

REACTIONS (7)
  - ACUTE RESPIRATORY FAILURE [None]
  - BACTERAEMIA [None]
  - CIRCULATORY COLLAPSE [None]
  - CLOSTRIDIUM DIFFICILE COLITIS [None]
  - CONDITION AGGRAVATED [None]
  - GENERAL PHYSICAL HEALTH DETERIORATION [None]
  - PSEUDOMEMBRANOUS COLITIS [None]
